FAERS Safety Report 25721980 (Version 1)
Quarter: 2025Q3

REPORT INFORMATION
  Report Type: Spontaneous
  Country: US (occurrence: None)
  Receive Date: 20250825
  Receipt Date: 20250825
  Transmission Date: 20251020
  Serious: Yes (Other)
  Sender: FDA-CTU
  Company Number: None

PATIENT
  Age: 71 Year
  Sex: Female
  Weight: 49.95 kg

DRUGS (34)
  1. JARDIANCE [Suspect]
     Active Substance: EMPAGLIFLOZIN
     Indication: Type 2 diabetes mellitus
     Dosage: OTHER QUANTITY : 30 TABLET(S);?FREQUENCY : DAILY;?
     Route: 048
  2. Dorzolamide 2 % ophthalmic solution [Concomitant]
  3. MECLIZINE [Concomitant]
     Active Substance: MECLIZINE HYDROCHLORIDE
  4. SPIRONOLACTONE [Concomitant]
     Active Substance: SPIRONOLACTONE
  5. ONDANSETRON [Concomitant]
     Active Substance: ONDANSETRON
  6. Disintegrating tablet [Concomitant]
  7. ATROPINE\DIPHENOXYLATE [Concomitant]
     Active Substance: ATROPINE\DIPHENOXYLATE
  8. METHOCARBAMOL [Concomitant]
     Active Substance: METHOCARBAMOL
  9. ACETAMINOPHEN\HYDROCODONE [Concomitant]
     Active Substance: ACETAMINOPHEN\HYDROCODONE
  10. FUROSEMIDE [Concomitant]
     Active Substance: FUROSEMIDE
  11. ENTRESTO [Concomitant]
     Active Substance: SACUBITRIL\VALSARTAN
  12. METFORMIN\SITAGLIPTIN [Concomitant]
     Active Substance: METFORMIN\SITAGLIPTIN
  13. PIOGLITAZONE [Concomitant]
     Active Substance: PIOGLITAZONE
  14. NYSTATIN [Concomitant]
     Active Substance: NYSTATIN
  15. ACYCLOVIR [Concomitant]
     Active Substance: ACYCLOVIR
  16. METOPROLOL SUCCINATE [Concomitant]
     Active Substance: METOPROLOL SUCCINATE
  17. LORATADINE [Concomitant]
     Active Substance: LORATADINE
  18. ALBUTEROL [Concomitant]
     Active Substance: ALBUTEROL
  19. CLOPIDOGREL [Concomitant]
     Active Substance: CLOPIDOGREL BISULFATE
  20. ATORVASTATIN [Concomitant]
     Active Substance: ATORVASTATIN
  21. PROLIA [Concomitant]
     Active Substance: DENOSUMAB
  22. VYZULTA [Concomitant]
     Active Substance: LATANOPROSTENE BUNOD
  23. Soln Diclofenac Sodium [Concomitant]
  24. BRIMONIDINE TARTRATE\TIMOLOL MALEATE [Concomitant]
     Active Substance: BRIMONIDINE TARTRATE\TIMOLOL MALEATE
  25. Omega 3 Gummies [Concomitant]
  26. Calcium Gummies [Concomitant]
  27. Zinc Gummies [Concomitant]
  28. VITAMIN D3 [Concomitant]
     Active Substance: CHOLECALCIFEROL
  29. Gummies Hair, [Concomitant]
  30. Nails and Skin Gummies [Concomitant]
  31. Magnesium Gummies [Concomitant]
  32. Multi Vitamin Gummies [Concomitant]
  33. IRON [Concomitant]
     Active Substance: IRON
  34. MINERALS\VITAMINS [Concomitant]
     Active Substance: MINERALS\VITAMINS

REACTIONS (8)
  - Dysuria [None]
  - Anal incontinence [None]
  - Urinary incontinence [None]
  - Vaginal infection [None]
  - Upper respiratory tract infection [None]
  - Therapy non-responder [None]
  - Blood glucose increased [None]
  - Nerve injury [None]

NARRATIVE: CASE EVENT DATE: 20250519
